FAERS Safety Report 9354810 (Version 3)
Quarter: 2013Q3

REPORT INFORMATION
  Report Type: Spontaneous
  Country: GB (occurrence: GB)
  Receive Date: 20130619
  Receipt Date: 20130805
  Transmission Date: 20140515
  Serious: Yes (Hospitalization)
  Sender: FDA-Public Use
  Company Number: GB-AMGEN-GBRSP2013042591

PATIENT
  Age: 58 Year
  Sex: Female

DRUGS (5)
  1. XGEVA [Suspect]
     Indication: BREAST CANCER METASTATIC
     Dosage: UNK UNK, QMO
     Route: 058
     Dates: start: 201304, end: 201304
  2. EXEMESTANE [Concomitant]
     Indication: BREAST CANCER METASTATIC
     Dosage: UNK
     Route: 048
     Dates: end: 20130716
  3. EVEROLIMUS [Concomitant]
     Indication: BREAST CANCER METASTATIC
     Dosage: UNK
     Route: 048
     Dates: end: 20130716
  4. RAMIPRIL [Concomitant]
  5. DIAZEPAM [Concomitant]

REACTIONS (6)
  - Hypocalcaemia [Not Recovered/Not Resolved]
  - Nervousness [Unknown]
  - Electrolyte imbalance [Unknown]
  - Anaemia [Unknown]
  - Incorrect route of drug administration [Unknown]
  - Magnesium deficiency [Unknown]
